FAERS Safety Report 13691447 (Version 1)
Quarter: 2017Q2

REPORT INFORMATION
  Report Type: Spontaneous
  Country: US (occurrence: US)
  Receive Date: 20170626
  Receipt Date: 20170626
  Transmission Date: 20170830
  Serious: No
  Sender: FDA-Public Use
  Company Number: US-ROCHE-648561

PATIENT
  Sex: Female

DRUGS (9)
  1. PLAQUENIL [Concomitant]
     Active Substance: HYDROXYCHLOROQUINE SULFATE
     Route: 065
  2. LASIX [Concomitant]
     Active Substance: FUROSEMIDE
     Route: 065
  3. NORVASC [Concomitant]
     Active Substance: AMLODIPINE BESYLATE
     Route: 065
  4. CALCIUM [Concomitant]
     Active Substance: CALCIUM
     Route: 065
  5. PREDNISONE. [Concomitant]
     Active Substance: PREDNISONE
     Route: 065
  6. PRILOSEC [Concomitant]
     Active Substance: OMEPRAZOLE MAGNESIUM
     Route: 065
  7. IRON [Concomitant]
     Active Substance: IRON
     Route: 065
  8. CELLCEPT [Suspect]
     Active Substance: MYCOPHENOLATE MOFETIL\MYCOPHENOLATE MOFETIL HYDROCHLORIDE
     Indication: SYSTEMIC LUPUS ERYTHEMATOSUS
     Route: 065
  9. AMBIEN [Concomitant]
     Active Substance: ZOLPIDEM TARTRATE
     Dosage: 12.5 MG AT NIGHT IF NEEDED
     Route: 065

REACTIONS (1)
  - Anaemia [Unknown]
